FAERS Safety Report 14525835 (Version 5)
Quarter: 2018Q2

REPORT INFORMATION
  Report Type: Spontaneous
  Country: IT (occurrence: IT)
  Receive Date: 20180213
  Receipt Date: 20180627
  Transmission Date: 20180711
  Serious: Yes (Hospitalization)
  Sender: FDA-Public Use
  Company Number: IT-PFIZER INC-2018058291

PATIENT
  Age: 76 Year
  Sex: Male

DRUGS (8)
  1. LIBRADIN /01301602/ [Interacting]
     Active Substance: BARNIDIPINE HYDROCHLORIDE
     Dosage: UNK
  2. SEQUACOR [Concomitant]
     Active Substance: BISOPROLOL
     Dosage: 2.5 MG, 1X/DAY
  3. HYDROCHLOROTHIAZIDE. [Interacting]
     Active Substance: HYDROCHLOROTHIAZIDE
     Indication: HYPERTENSION
     Dosage: UNK
  4. LYRICA [Concomitant]
     Active Substance: PREGABALIN
     Dosage: 75 MG, 1X/DAY
  5. KARVEZIDE [Interacting]
     Active Substance: HYDROCHLOROTHIAZIDE\IRBESARTAN
     Dosage: UNK
     Route: 048
  6. METFORMIN [Concomitant]
     Active Substance: METFORMIN HYDROCHLORIDE
     Dosage: 1500 MG, 1X/DAY
  7. CARDURA [Suspect]
     Active Substance: DOXAZOSIN MESYLATE
     Dosage: UNK
     Route: 048
  8. SIVASTIN [Concomitant]
     Active Substance: SIMVASTATIN
     Dosage: 20 MG, 1X/DAY

REACTIONS (3)
  - Hyperkalaemia [Recovering/Resolving]
  - Drug interaction [Unknown]
  - Hypotension [Recovering/Resolving]

NARRATIVE: CASE EVENT DATE: 20171112
